FAERS Safety Report 14338168 (Version 1)
Quarter: 2017Q4

REPORT INFORMATION
  Report Type: Spontaneous
  Country: US (occurrence: US)
  Receive Date: 20171229
  Receipt Date: 20171229
  Transmission Date: 20180321
  Serious: No
  Sender: FDA-Public Use
  Company Number: US-TEVA-2017-US-831602

PATIENT
  Sex: Female

DRUGS (1)
  1. DIAMOX SEQUELS [Suspect]
     Active Substance: ACETAZOLAMIDE
     Indication: IDIOPATHIC INTRACRANIAL HYPERTENSION

REACTIONS (6)
  - Drug ineffective [Unknown]
  - Paraesthesia [Unknown]
  - Expired product administered [Unknown]
  - Product use in unapproved indication [Unknown]
  - Ill-defined disorder [Unknown]
  - Drug prescribing error [Unknown]
